FAERS Safety Report 7713862-7 (Version None)
Quarter: 2011Q3

REPORT INFORMATION
  Report Type: 
  Country: None (occurrence: None)
  Receive Date: 20110826
  Receipt Date: 20110822
  Transmission Date: 20111222
  Serious: Yes (Hospitalization, Other)
  Sender: FDA-Public Use
  Company Number: US-ELI_LILLY_AND_COMPANY-US201008003381

PATIENT
  Sex: Male
  Weight: 111.57 kg

DRUGS (15)
  1. ASPIRIN [Concomitant]
     Dosage: 81 MG, EACH EVENING
  2. ATENOLOL AND CHLORTHALIDONE [Concomitant]
     Dosage: 1 DF, QD
  3. LEVAQUIN [Concomitant]
     Dosage: 500 MG, QD
     Route: 048
  4. ALLOPURINOL [Concomitant]
     Dosage: 300 MG, QD
  5. PHENTERMINE HCL [Concomitant]
     Dosage: 37.5 MG, QD
     Route: 048
  6. AMLODIPINE [Concomitant]
     Dosage: 10 MG, QD
  7. AVANDAMET [Concomitant]
     Dosage: 1 DF, BID
     Route: 048
  8. LUNESTA [Concomitant]
     Dosage: 3 MG, EACH EVENING
  9. CRESTOR [Concomitant]
     Dosage: 10 MG, EACH EVENING
     Route: 048
  10. VITAMIN B-12 [Concomitant]
     Dosage: 100 UG, BID
  11. ZANTAC [Concomitant]
     Dosage: 150 MG, EACH EVENING
     Route: 048
  12. NORVASC [Concomitant]
     Dosage: 10 MG, QD
     Route: 048
  13. FLOMAX [Concomitant]
     Dosage: 0.4 MG, QD
  14. FLONASE [Concomitant]
     Dosage: 2 DF, QD
  15. BYETTA [Suspect]
     Indication: TYPE 2 DIABETES MELLITUS
     Dosage: 10 UG, BID
     Route: 058
     Dates: start: 20050101, end: 20070911

REACTIONS (4)
  - PANCREATITIS RELAPSING [None]
  - PANCREATIC ABSCESS [None]
  - PANCREATITIS ACUTE [None]
  - PNEUMONIA [None]
